FAERS Safety Report 8517398-5 (Version None)
Quarter: 2012Q3

REPORT INFORMATION
  Report Type: 
  Country: None (occurrence: None)
  Receive Date: 20120718
  Receipt Date: 20120711
  Transmission Date: 20120928
  Serious: Yes (Life-Threatening, Hospitalization)
  Sender: FDA-Public Use
  Company Number: JP-EISAI INC-E7389-02585-CLI-JP

PATIENT
  Sex: Male
  Weight: 60 kg

DRUGS (26)
  1. MAGMITT [Concomitant]
     Indication: CONSTIPATION
     Route: 048
     Dates: start: 20110408
  2. GENTAMICIN SULFATE [Concomitant]
     Indication: COMPRESSION FRACTURE
  3. EPIRUBICIN HYDROCHLORIDE [Suspect]
     Indication: NON-SMALL CELL LUNG CANCER
     Route: 041
     Dates: start: 20120321, end: 20120530
  4. ADONA [Suspect]
     Route: 041
     Dates: start: 20120628, end: 20120703
  5. TRANSAMINE CAP [Suspect]
     Route: 048
     Dates: start: 20110706, end: 20120627
  6. ADONA [Suspect]
     Route: 048
     Dates: start: 20110706, end: 20120627
  7. CEROCRAL [Suspect]
     Indication: CEREBRAL INFARCTION
     Route: 048
     Dates: start: 20120615, end: 20120628
  8. FAMOTIDINE [Concomitant]
     Indication: GASTRITIS PROPHYLAXIS
     Route: 048
     Dates: start: 20120203
  9. VALTREX [Suspect]
     Indication: HERPES ZOSTER
     Route: 048
     Dates: start: 20120612
  10. NAPROXEN [Concomitant]
     Indication: TUMOUR ASSOCIATED FEVER
     Route: 048
     Dates: start: 20120203
  11. SELTOUCH [Concomitant]
     Indication: COMPRESSION FRACTURE
  12. STICKZENOL [Concomitant]
     Dates: start: 20120417
  13. POSTERISAN [Concomitant]
     Indication: HAEMORRHOIDS
     Dates: start: 20120524
  14. GENTAMICIN SULFATE [Concomitant]
     Indication: HERPES ZOSTER
     Dates: start: 20120417
  15. DEXAMETHASONE SODIUM PHOSPHATE [Suspect]
     Indication: ANTIEMETIC SUPPORTIVE CARE
     Route: 041
     Dates: start: 20120321, end: 20120530
  16. ADONA [Suspect]
     Route: 048
     Dates: start: 20120704, end: 20120704
  17. ADONA [Suspect]
     Route: 041
     Dates: start: 20120704
  18. TRANSAMINE CAP [Suspect]
     Dosage: UNKNOWN
     Route: 048
     Dates: start: 20120704, end: 20120704
  19. ARSENA-A [Concomitant]
     Indication: HERPES ZOSTER
     Dates: start: 20120612
  20. SELTOUCH [Concomitant]
     Dates: start: 20110806
  21. TRANSAMINE CAP [Suspect]
     Dosage: UNKNOWN
     Route: 041
     Dates: start: 20120628, end: 20120703
  22. TRANSAMINE CAP [Suspect]
     Dosage: UNKNOWN
     Route: 041
     Dates: start: 20120704
  23. TRAMADOL HYDROCHLORIDE/ACETAMINOPHEN [Concomitant]
     Indication: NON-SMALL CELL LUNG CANCER
     Route: 048
     Dates: start: 20120328
  24. HUSTAZOL [Concomitant]
     Indication: COUGH
     Route: 048
     Dates: start: 20120529
  25. STICKZENOL [Concomitant]
     Indication: COMPRESSION FRACTURE
  26. POSTERISAN [Concomitant]
     Indication: COMPRESSION FRACTURE

REACTIONS (2)
  - HAEMOPTYSIS [None]
  - CEREBRAL INFARCTION [None]
